FAERS Safety Report 4710474-4 (Version None)
Quarter: 2005Q3

REPORT INFORMATION
  Report Type: 
  Country: None (occurrence: None)
  Receive Date: 20050707
  Receipt Date: 20050616
  Transmission Date: 20060218
  Serious: Yes (Hospitalization)
  Sender: FDA-Public Use
  Company Number: FR_050606654

PATIENT
  Age: 68 Year
  Sex: Female

DRUGS (1)
  1. CIALIS [Suspect]
     Indication: ERECTILE DYSFUNCTION
     Dates: start: 20050608, end: 20050608

REACTIONS (2)
  - COLON POLYPECTOMY [None]
  - INTESTINAL DILATATION [None]
